FAERS Safety Report 5654534-2 (Version None)
Quarter: 2008Q1

REPORT INFORMATION
  Report Type: 
  Country: None (occurrence: None)
  Receive Date: 20080307
  Receipt Date: 20080226
  Transmission Date: 20080703
  Serious: Yes (Death, Life-Threatening, Hospitalization)
  Sender: FDA-Public Use
  Company Number: US-BAYER-200813036NA

PATIENT
  Age: 71 Year
  Sex: Male
  Weight: 77 kg

DRUGS (3)
  1. MAGNEVIST SINGLE DOSE VIAL [Suspect]
     Indication: ANGIOGRAM
     Dosage: TOTAL DAILY DOSE: 40 ML
     Route: 042
     Dates: start: 20080131, end: 20080131
  2. MAGNEVIST SINGLE DOSE VIAL [Suspect]
     Dosage: AS USED: 2 ML
     Dates: start: 20080131, end: 20080131
  3. UNSPECIFIED INHALER [Concomitant]
     Indication: EMPHYSEMA

REACTIONS (5)
  - CONVULSION [None]
  - DEPRESSED LEVEL OF CONSCIOUSNESS [None]
  - NAUSEA [None]
  - RESPIRATORY ARREST [None]
  - RESPIRATORY FAILURE [None]
